FAERS Safety Report 7704120-5 (Version None)
Quarter: 2011Q3

REPORT INFORMATION
  Report Type: 
  Country: None (occurrence: None)
  Receive Date: 20110823
  Receipt Date: 20110817
  Transmission Date: 20111222
  Serious: Yes (Disabling)
  Sender: FDA-Public Use
  Company Number: DE-TEVA-297047GER

PATIENT
  Sex: Male
  Weight: 62 kg

DRUGS (3)
  1. MARCUMAR 3 MG [Concomitant]
     Dates: start: 20040101
  2. METOPROLOL-RATIOPHARM NK 50 MG [Suspect]
     Indication: HYPERTENSION
     Dosage: 50 MILLIGRAM;
     Route: 048
     Dates: start: 20040101, end: 20090101
  3. RAMIPRIL [Concomitant]
     Dosage: 2.5 MILLIGRAM;
     Dates: start: 20040101

REACTIONS (1)
  - PEYRONIE'S DISEASE [None]
